FAERS Safety Report 6892639-9 (Version None)
Quarter: 2010Q3

REPORT INFORMATION
  Report Type: 
  Country: None (occurrence: None)
  Receive Date: 20100731
  Receipt Date: 20080722
  Transmission Date: 20110219
  Serious: Yes (Other)
  Sender: FDA-Public Use
  Company Number: US-PFIZER INC-2008062172

PATIENT
  Sex: Male
  Weight: 113.4 kg

DRUGS (8)
  1. NEURONTIN [Suspect]
     Indication: NEURALGIA
     Dates: start: 20080101
  2. ALL OTHER THERAPEUTIC PRODUCTS [Suspect]
  3. ADVAIR DISKUS 100/50 [Concomitant]
  4. MONTELUKAST SODIUM [Concomitant]
  5. ZYRTEC [Concomitant]
  6. XANAX [Concomitant]
  7. PERCOCET [Concomitant]
  8. ULTRAM [Concomitant]

REACTIONS (1)
  - BLOOD PRESSURE INCREASED [None]
